FAERS Safety Report 25671749 (Version 1)
Quarter: 2025Q3

REPORT INFORMATION
  Report Type: Spontaneous
  Country: US (occurrence: US)
  Receive Date: 20250812
  Receipt Date: 20250812
  Transmission Date: 20251021
  Serious: No
  Sender: PFIZER
  Company Number: US-PFIZER INC-PV202500097563

PATIENT
  Age: 62 Year
  Sex: Female

DRUGS (1)
  1. XELJANZ [Suspect]
     Active Substance: TOFACITINIB CITRATE
     Indication: Vitiligo
     Dosage: 10 MG, 2X/DAY
     Route: 048
     Dates: start: 202507

REACTIONS (2)
  - Blood cholesterol increased [Unknown]
  - Off label use [Unknown]

NARRATIVE: CASE EVENT DATE: 20250701
